FAERS Safety Report 8169961-1 (Version None)
Quarter: 2012Q1

REPORT INFORMATION
  Report Type: 
  Country: None (occurrence: None)
  Receive Date: 20120228
  Receipt Date: 20120228
  Transmission Date: 20120608
  Serious: Yes (Other)
  Sender: FDA-Public Use
  Company Number: None

PATIENT
  Sex: Female
  Weight: 50.7 kg

DRUGS (2)
  1. IRINOTECAN HCL [Suspect]
     Dosage: 232
     Route: 042
  2. FOLFIRINOX [Concomitant]

REACTIONS (3)
  - MENTAL IMPAIRMENT [None]
  - HYPOAESTHESIA ORAL [None]
  - ABNORMAL SENSATION IN EYE [None]
